FAERS Safety Report 20447534 (Version 1)
Quarter: 2022Q1

REPORT INFORMATION
  Report Type: Report from Study
  Country: US (occurrence: US)
  Receive Date: 20220209
  Receipt Date: 20220209
  Transmission Date: 20220423
  Serious: No
  Sender: FDA-Public Use
  Company Number: US-HRARD-2021000811

PATIENT
  Age: 31 Year
  Sex: Male

DRUGS (6)
  1. LYSODREN [Suspect]
     Active Substance: MITOTANE
     Dosage: 5 TABLETS THREE TIMES DAILY
     Route: 048
     Dates: start: 20210317
  2. LYSODREN [Suspect]
     Active Substance: MITOTANE
     Dosage: 3000 MG TID
     Route: 048
  3. LYSODREN [Suspect]
     Active Substance: MITOTANE
     Dosage: 07 TABLETS TID
     Route: 048
  4. ALLOPURINOL [Concomitant]
     Active Substance: ALLOPURINOL
     Dosage: 100 MG
     Route: 065
  5. Glycopyrrol [Concomitant]
     Dosage: 01 MG
     Route: 065
  6. LISINOPRIL [Concomitant]
     Active Substance: LISINOPRIL
     Dosage: 05 MG
     Route: 065

REACTIONS (5)
  - Arthralgia [Not Recovered/Not Resolved]
  - Pain [Not Recovered/Not Resolved]
  - Fatigue [Not Recovered/Not Resolved]
  - Nausea [Not Recovered/Not Resolved]
  - Vomiting [Not Recovered/Not Resolved]

NARRATIVE: CASE EVENT DATE: 20210501
